FAERS Safety Report 11651658 (Version 1)
Quarter: 2015Q4

REPORT INFORMATION
  Report Type: Spontaneous
  Country: KW (occurrence: KW)
  Receive Date: 20151022
  Receipt Date: 20151022
  Transmission Date: 20160304
  Serious: Yes (Other)
  Sender: FDA-Public Use
  Company Number: KW-ROCHE-1648890

PATIENT
  Age: 36 Year
  Sex: Male

DRUGS (2)
  1. SOMATROPIN [Suspect]
     Active Substance: SOMATROPIN
     Indication: MUSCLE BUILDING THERAPY
     Dosage: AVERAGE OF 100 MG/DAY
     Route: 065
  2. TESTOSTERONE. [Suspect]
     Active Substance: TESTOSTERONE
     Indication: PRODUCT USED FOR UNKNOWN INDICATION
     Dosage: UP TO 250 MG/DAY
     Route: 030

REACTIONS (6)
  - Kidney fibrosis [Recovering/Resolving]
  - Drug abuse [Unknown]
  - Nephrolithiasis [Unknown]
  - Focal segmental glomerulosclerosis [Recovering/Resolving]
  - Intentional overdose [Unknown]
  - Product use issue [Unknown]
